FAERS Safety Report 10056191 (Version 1)
Quarter: 2014Q2

REPORT INFORMATION
  Report Type: Spontaneous
  Country: DE (occurrence: None)
  Receive Date: 20140401
  Receipt Date: 20140401
  Transmission Date: 20141212
  Serious: Yes (Hospitalization, Other)
  Sender: FDA-Public Use
  Company Number: 2014-19274

PATIENT
  Age: 76 Year
  Sex: Male
  Weight: 75 kg

DRUGS (3)
  1. EYELEA [Suspect]
     Indication: AGE-RELATED MACULAR DEGENERATION
     Dates: start: 20131130, end: 20140130
  2. LOBIDIUR (HYDROCHLOROTHIAZIDE, NEBIVOLOL HYDROCHLORIDE) FILM-COATED TABLETS [Concomitant]
  3. RETENSIR [Concomitant]

REACTIONS (4)
  - Hypertensive crisis [None]
  - Renal failure acute [None]
  - Proteinuria [None]
  - Renal injury [None]
